FAERS Safety Report 20279012 (Version 1)
Quarter: 2022Q1

REPORT INFORMATION
  Report Type: Report from Study
  Country: SA (occurrence: SA)
  Receive Date: 20220103
  Receipt Date: 20220103
  Transmission Date: 20220423
  Serious: Yes (Hospitalization)
  Sender: FDA-Public Use
  Company Number: SA-AMGEN-SAUSL2021134959

PATIENT
  Age: 56 Year
  Sex: Male

DRUGS (1)
  1. REPATHA [Suspect]
     Active Substance: EVOLOCUMAB
     Indication: Dyslipidaemia
     Dosage: Q2WK
     Route: 065

REACTIONS (5)
  - Blood creatine phosphokinase increased [Unknown]
  - Myopathy [Unknown]
  - Pain [Unknown]
  - Muscle fatigue [Unknown]
  - Mobility decreased [Unknown]
